FAERS Safety Report 6865505-2 (Version None)
Quarter: 2010Q3

REPORT INFORMATION
  Report Type: 
  Country: None (occurrence: None)
  Receive Date: 20100721
  Receipt Date: 20080620
  Transmission Date: 20110219
  Serious: No
  Sender: FDA-Public Use
  Company Number: US-PFIZER INC-2008036348

PATIENT
  Sex: Male
  Weight: 88 kg

DRUGS (10)
  1. CHANTIX [Suspect]
     Indication: SMOKING CESSATION THERAPY
     Dates: start: 20080307, end: 20080404
  2. AMLODIPINE BESYLATE/VALSARTAN [Concomitant]
  3. LYRICA [Concomitant]
  4. LANTUS [Concomitant]
  5. ACETYLSALICYLIC ACID [Concomitant]
  6. VITAMINS [Concomitant]
  7. AMLODIPINE [Concomitant]
  8. LIPITOR [Concomitant]
  9. METFORMIN [Concomitant]
  10. COSOPT [Concomitant]

REACTIONS (3)
  - ABNORMAL BEHAVIOUR [None]
  - DEPRESSIVE SYMPTOM [None]
  - FEELING ABNORMAL [None]
